FAERS Safety Report 11348100 (Version 1)
Quarter: 2015Q3

REPORT INFORMATION
  Report Type: Report from Study
  Country: DE (occurrence: DE)
  Receive Date: 20150806
  Receipt Date: 20150806
  Transmission Date: 20151125
  Serious: Yes (Hospitalization)
  Sender: FDA-Public Use
  Company Number: DE-BAXALTA-2015BLT000885

PATIENT
  Age: 50 Year
  Weight: 72 kg

DRUGS (7)
  1. PANTOZOL [Concomitant]
     Active Substance: PANTOPRAZOLE SODIUM
     Indication: GASTRITIS
     Dosage: 40 MG, 1X A DAY
     Route: 048
     Dates: start: 20150723
  2. RALTEGRAVIR. [Concomitant]
     Active Substance: RALTEGRAVIR
     Indication: ANTIRETROVIRAL THERAPY
     Dosage: 400 MG, 1-0-1
     Route: 048
     Dates: start: 20091215
  3. OCTOCOG ALFA; BAXJECT II [Suspect]
     Active Substance: ANTIHEMOPHILIC FACTOR, HUMAN RECOMBINANT
     Indication: PROPHYLAXIS
     Dosage: 2000 IU, 3X A WEEK
     Route: 042
     Dates: start: 20101015, end: 20150723
  4. OCTOCOG ALFA; BAXJECT II [Suspect]
     Active Substance: ANTIHEMOPHILIC FACTOR, HUMAN RECOMBINANT
     Indication: FACTOR VIII DEFICIENCY
  5. LOPINAVIR [Concomitant]
     Active Substance: LOPINAVIR
     Indication: ANTIRETROVIRAL THERAPY
     Dosage: 100 MG, 2-0-2
     Route: 048
     Dates: start: 20091215
  6. RITONAVIR. [Concomitant]
     Active Substance: RITONAVIR
     Indication: ANTIRETROVIRAL THERAPY
     Dosage: 25 MG, 2-0-2
     Route: 048
     Dates: start: 20091215
  7. TILICOMP [Concomitant]
     Indication: ARTHRALGIA
     Dosage: TILIDIN 100MG, NALOXON 8MG, AS NEEDED
     Route: 048
     Dates: start: 20060101

REACTIONS (1)
  - Diverticulum [Not Recovered/Not Resolved]

NARRATIVE: CASE EVENT DATE: 20150723
